FAERS Safety Report 24998878 (Version 1)
Quarter: 2025Q1

REPORT INFORMATION
  Report Type: Spontaneous
  Country: US (occurrence: US)
  Receive Date: 20250222
  Receipt Date: 20250222
  Transmission Date: 20250409
  Serious: No
  Sender: SANOFI AVENTIS
  Company Number: US-SA-2024SA312130

PATIENT
  Age: 17 Year
  Sex: Female

DRUGS (1)
  1. FABRAZYME [Suspect]
     Active Substance: AGALSIDASE BETA
     Dosage: 55 MG, BIM
     Route: 040

REACTIONS (2)
  - Infusion site rash [Unknown]
  - Appendicectomy [Unknown]

NARRATIVE: CASE EVENT DATE: 20241011
